FAERS Safety Report 5917099-3 (Version None)
Quarter: 2008Q4

REPORT INFORMATION
  Report Type: 
  Country: None (occurrence: None)
  Receive Date: 20081014
  Receipt Date: 20081009
  Transmission Date: 20090506
  Serious: Yes (Other)
  Sender: FDA-Public Use
  Company Number: DE-ALLERGAN-0812414US

PATIENT
  Sex: Male

DRUGS (4)
  1. GANFORT [Suspect]
     Indication: GLAUCOMA
     Route: 047
  2. GANFORT [Suspect]
     Route: 047
  3. ALPHAGAN [Concomitant]
     Indication: GLAUCOMA
     Route: 047
  4. EUGLUCON [Concomitant]
     Indication: TYPE 2 DIABETES MELLITUS
     Route: 048

REACTIONS (1)
  - INTRAOCULAR PRESSURE INCREASED [None]
